FAERS Safety Report 25539714 (Version 1)
Quarter: 2025Q3

REPORT INFORMATION
  Report Type: Spontaneous
  Country: AU (occurrence: None)
  Receive Date: 20250710
  Receipt Date: 20250710
  Transmission Date: 20251020
  Serious: Yes (Death, Life-Threatening)
  Sender: FDA-CTU
  Company Number: None

PATIENT
  Age: 30 Year
  Sex: Male
  Weight: 80 kg

DRUGS (2)
  1. FINASTERIDE [Suspect]
     Active Substance: FINASTERIDE
     Indication: Androgenetic alopecia
  2. NIL [Concomitant]

REACTIONS (3)
  - Substance-induced psychotic disorder [None]
  - Quality of life decreased [None]
  - Thinking abnormal [None]

NARRATIVE: CASE EVENT DATE: 20241013
